FAERS Safety Report 18038117 (Version 1)
Quarter: 2020Q3

REPORT INFORMATION
  Report Type: Spontaneous
  Country: GB (occurrence: GB)
  Receive Date: 20200717
  Receipt Date: 20200717
  Transmission Date: 20201103
  Serious: Yes (Other)
  Sender: FDA-Public Use
  Company Number: GB-ASCEND THERAPEUTICS US, LLC-2087467

PATIENT
  Age: 44 Year
  Sex: Female
  Weight: 58 kg

DRUGS (3)
  1. ESTROGEL [Suspect]
     Active Substance: ESTRADIOL
     Indication: HORMONE REPLACEMENT THERAPY
     Route: 065
     Dates: start: 20200315
  2. OESTRODOSE (ESTRADIOL) (0.06 PERCENT, GEL), UNKNOWN [Suspect]
     Active Substance: ESTRADIOL
     Route: 065
     Dates: start: 20200315
  3. ESTROGEL [Suspect]
     Active Substance: ESTRADIOL

REACTIONS (6)
  - Bladder dysfunction [Unknown]
  - Tinnitus [Unknown]
  - Product substitution issue [Unknown]
  - Menopausal symptoms [Unknown]
  - Drug ineffective [Not Recovered/Not Resolved]
  - Anxiety [Unknown]
